FAERS Safety Report 14162529 (Version 1)
Quarter: 2017Q4

REPORT INFORMATION
  Report Type: Not Available
  Country: CN (occurrence: CN)
  Receive Date: 20171106
  Receipt Date: 20171106
  Transmission Date: 20180321
  Serious: Yes (Other)
  Sender: FDA-Public Use
  Company Number: CN-ANIPHARMA-2017-CN-000079

PATIENT
  Age: 50 Year
  Sex: Male

DRUGS (3)
  1. OLANZAPINE. [Suspect]
     Active Substance: OLANZAPINE
     Dosage: 5 MG DAILY
  2. PYRIDOSTIGMINE (NON-SPECIFIC) [Suspect]
     Active Substance: PYRIDOSTIGMINE
     Dosage: 60 MG 3 TIMES DAILY
  3. DULOXETINE. [Suspect]
     Active Substance: DULOXETINE
     Dosage: 60 MG DAILY

REACTIONS (1)
  - Dystonia [Unknown]
